FAERS Safety Report 25155380 (Version 1)
Quarter: 2025Q2

REPORT INFORMATION
  Report Type: Spontaneous
  Country: US (occurrence: US)
  Receive Date: 20250403
  Receipt Date: 20250403
  Transmission Date: 20250717
  Serious: No
  Sender: ROCHE
  Company Number: US-ROCHE-10000244730

PATIENT
  Age: 28 Year
  Sex: Female

DRUGS (1)
  1. XOLAIR [Suspect]
     Active Substance: OMALIZUMAB
     Indication: Nasal polyps
     Route: 058
     Dates: start: 202410

REACTIONS (2)
  - Drug ineffective [Unknown]
  - No adverse event [Unknown]

NARRATIVE: CASE EVENT DATE: 20250101
